FAERS Safety Report 8174115-9 (Version None)
Quarter: 2012Q1

REPORT INFORMATION
  Report Type: 
  Country: None (occurrence: None)
  Receive Date: 20120224
  Receipt Date: 20120215
  Transmission Date: 20120608
  Serious: Yes (Other)
  Sender: FDA-Public Use
  Company Number: FR-1190601

PATIENT
  Age: 35 Year
  Sex: Female
  Weight: 60 kg

DRUGS (1)
  1. CYCLOPENTOLATE HCL [Suspect]
     Indication: FUNDOSCOPY
     Dosage: (4 DROPS OPHTHALMIC)
     Route: 047
     Dates: start: 20120104

REACTIONS (5)
  - HEADACHE [None]
  - INCORRECT DOSE ADMINISTERED [None]
  - MYDRIASIS [None]
  - NAUSEA [None]
  - MEDICATION ERROR [None]
